FAERS Safety Report 25860324 (Version 1)
Quarter: 2025Q3

REPORT INFORMATION
  Report Type: Spontaneous
  Country: US (occurrence: US)
  Receive Date: 20250929
  Receipt Date: 20250929
  Transmission Date: 20251020
  Serious: Yes (Other)
  Sender: TEVA
  Company Number: US-TEVA-VS-3375197

PATIENT
  Age: 33 Year
  Sex: Male

DRUGS (3)
  1. UZEDY [Suspect]
     Active Substance: RISPERIDONE
     Indication: Schizoaffective disorder
     Dosage: 125 MG Q1M
     Route: 065
     Dates: start: 20250625
  2. UZEDY [Suspect]
     Active Substance: RISPERIDONE
     Dosage: 100 MG Q1M
     Route: 065
     Dates: start: 20241224
  3. CANNABIS SATIVA SUBSP. INDICA TOP [Suspect]
     Active Substance: CANNABIS SATIVA SUBSP. INDICA TOP
     Indication: Product used for unknown indication
     Route: 065

REACTIONS (3)
  - Hallucinations, mixed [Unknown]
  - Therapeutic product effect incomplete [Unknown]
  - Drug abuse [Unknown]

NARRATIVE: CASE EVENT DATE: 20250101
